FAERS Safety Report 5989429-8 (Version None)
Quarter: 2008Q4

REPORT INFORMATION
  Report Type: 
  Country: None (occurrence: None)
  Receive Date: 20081205
  Receipt Date: 20081121
  Transmission Date: 20090506
  Serious: Yes (Hospitalization)
  Sender: FDA-Public Use
  Company Number: KV200800616

PATIENT
  Age: 68 Year
  Sex: Female

DRUGS (5)
  1. MORPHINE SULFATE [Suspect]
     Indication: NEOPLASM MALIGNANT
     Dosage: 15 MG, ONE TABLET EVERY 8 HRS., ORAL
     Route: 048
     Dates: start: 20081018, end: 20081110
  2. VALTREX [Concomitant]
  3. METAPROTERENOL SULFATE [Concomitant]
  4. HYDROCHLOROTHIAZIDE [Concomitant]
  5. LORTAB [Concomitant]

REACTIONS (3)
  - BLOOD PRESSURE DECREASED [None]
  - HALLUCINATION [None]
  - PRODUCT QUALITY ISSUE [None]
